FAERS Safety Report 18565945 (Version 1)
Quarter: 2020Q4

REPORT INFORMATION
  Report Type: Spontaneous
  Country: US (occurrence: US)
  Receive Date: 20201201
  Receipt Date: 20201201
  Transmission Date: 20210114
  Serious: Yes (Hospitalization)
  Sender: FDA-Public Use
  Company Number: US-ASTRAZENECA-2020SF57988

PATIENT
  Age: 31688 Day
  Sex: Male
  Weight: 86.2 kg

DRUGS (13)
  1. TORSEMIDE. [Concomitant]
     Active Substance: TORSEMIDE
     Indication: BLOOD PRESSURE MEASUREMENT
     Route: 048
  2. DOXAZOSIN [Concomitant]
     Active Substance: DOXAZOSIN MESYLATE
     Indication: BLOOD PRESSURE MEASUREMENT
     Route: 048
  3. FINASTERIDE. [Concomitant]
     Active Substance: FINASTERIDE
     Indication: PROSTATOMEGALY
     Route: 048
  4. CALQUENCE [Suspect]
     Active Substance: ACALABRUTINIB
     Indication: CHRONIC LYMPHOCYTIC LEUKAEMIA
     Route: 048
     Dates: start: 202009, end: 20201114
  5. DOXAZOSIN [Concomitant]
     Active Substance: DOXAZOSIN MESYLATE
     Indication: PROSTATOMEGALY
     Route: 048
  6. FOLIC ACID. [Concomitant]
     Active Substance: FOLIC ACID
     Indication: VITAMIN SUPPLEMENTATION
     Route: 048
     Dates: start: 2020
  7. LEVOTHYROXINE. [Concomitant]
     Active Substance: LEVOTHYROXINE
     Indication: THYROID DISORDER
     Route: 048
  8. ATORVASTATIN [Concomitant]
     Active Substance: ATORVASTATIN
     Indication: BLOOD CHOLESTEROL INCREASED
     Route: 048
  9. LUMIGAN [Concomitant]
     Active Substance: BIMATOPROST
     Indication: EYE DISORDER
     Route: 047
  10. FISH OIL [Concomitant]
     Active Substance: FISH OIL
     Indication: ROUTINE HEALTH MAINTENANCE
     Route: 048
  11. CARVEDILOL. [Concomitant]
     Active Substance: CARVEDILOL
     Indication: BLOOD PRESSURE MEASUREMENT
     Route: 048
  12. MINOXIDIL. [Concomitant]
     Active Substance: MINOXIDIL
     Indication: BLOOD PRESSURE MEASUREMENT
     Route: 048
  13. LISINOPRIL. [Concomitant]
     Active Substance: LISINOPRIL
     Indication: BLOOD PRESSURE MEASUREMENT
     Route: 048

REACTIONS (12)
  - Faeces discoloured [Unknown]
  - Feeling cold [Unknown]
  - Sleep terror [Unknown]
  - Walking disability [Not Recovered/Not Resolved]
  - Pain [Not Recovered/Not Resolved]
  - Loss of consciousness [Recovered/Resolved]
  - Arthralgia [Not Recovered/Not Resolved]
  - Haemorrhage [Unknown]
  - Electrolyte imbalance [Unknown]
  - Cardiac arrest [Unknown]
  - Groin pain [Not Recovered/Not Resolved]
  - Tremor [Recovered/Resolved]

NARRATIVE: CASE EVENT DATE: 20201113
